FAERS Safety Report 5864148-7 (Version None)
Quarter: 2008Q3

REPORT INFORMATION
  Report Type: 
  Country: None (occurrence: None)
  Receive Date: 20080829
  Receipt Date: 20080822
  Transmission Date: 20090109
  Serious: Yes (Other)
  Sender: FDA-Public Use
  Company Number: US-JNJFOC-20080805742

PATIENT
  Sex: Male

DRUGS (14)
  1. PREZISTA [Suspect]
     Dates: start: 20080414, end: 20080507
  2. PREZISTA [Suspect]
     Dates: start: 20080414, end: 20080507
  3. PREZISTA [Suspect]
     Indication: HIV INFECTION
     Dates: start: 20080414, end: 20080507
  4. PREDNISOLONE [Concomitant]
  5. BACTRIM [Concomitant]
  6. EPZICOM [Concomitant]
     Indication: HIV INFECTION
     Dates: start: 20080414, end: 20080417
  7. VIREAD [Concomitant]
     Dates: start: 20080414, end: 20080417
  8. VIREAD [Concomitant]
     Dates: start: 20080414, end: 20080417
  9. VIREAD [Concomitant]
     Indication: HIV INFECTION
     Dates: start: 20080414, end: 20080417
  10. ISENTRESS [Concomitant]
  11. ISENTRESS [Concomitant]
     Indication: HIV INFECTION
  12. NORVIR [Concomitant]
     Indication: HIV INFECTION
  13. DAPSONE [Concomitant]
  14. BENADRYL [Concomitant]

REACTIONS (3)
  - CONJUNCTIVITIS [None]
  - PYREXIA [None]
  - RASH MACULO-PAPULAR [None]
